FAERS Safety Report 10210509 (Version 1)
Quarter: 2014Q2

REPORT INFORMATION
  Report Type: Spontaneous
  Country: US (occurrence: None)
  Receive Date: 20140529
  Receipt Date: 20140529
  Transmission Date: 20141212
  Serious: Yes (Hospitalization)
  Sender: FDA-Public Use
  Company Number: None

PATIENT
  Age: 19 Year
  Sex: Male
  Weight: 75 kg

DRUGS (6)
  1. DOXORUBICIN [Suspect]
  2. ETOPOSIDE [Suspect]
  3. IFOSFAMIDE [Suspect]
  4. CISPLATIN [Suspect]
  5. MESNA [Suspect]
  6. METHOTREXATE [Suspect]
     Dosage: 219000 G?

REACTIONS (2)
  - Acute myeloid leukaemia [None]
  - Oropharyngeal pain [None]
